FAERS Safety Report 9420010 (Version 2)
Quarter: 2013Q4

REPORT INFORMATION
  Report Type: Spontaneous
  Country: US (occurrence: US)
  Receive Date: 20130725
  Receipt Date: 20131004
  Transmission Date: 20140711
  Serious: Yes (Other)
  Sender: FDA-Public Use
  Company Number: US-GLAXOSMITHKLINE-A1033745A

PATIENT
  Age: 22 Year
  Sex: Female

DRUGS (13)
  1. BENLYSTA [Suspect]
     Indication: SYSTEMIC LUPUS ERYTHEMATOSUS
     Dosage: 10MGK UNKNOWN
     Route: 042
     Dates: start: 20130605
  2. CONCERTA [Concomitant]
  3. TRI-SPRINTEC [Concomitant]
  4. ZOLOFT [Concomitant]
     Dosage: 25MG PER DAY
  5. PLAQUENIL [Concomitant]
     Dosage: 200MG TWICE PER DAY
  6. MELATONIN [Concomitant]
  7. BIOTIN [Concomitant]
  8. ANALGESIC [Concomitant]
     Indication: PREMEDICATION
     Route: 048
  9. ANTIHISTAMINE [Concomitant]
     Indication: PREMEDICATION
     Route: 048
  10. NEXIUM [Concomitant]
     Dosage: 40MG PER DAY
  11. ALBUTEROL [Concomitant]
  12. ADVAIR [Concomitant]
  13. FERROUS SULPHATE [Concomitant]
     Dosage: 325MG PER DAY

REACTIONS (8)
  - Anaphylactic reaction [Recovered/Resolved]
  - Heart rate decreased [Recovered/Resolved]
  - Throat irritation [Recovered/Resolved]
  - Swollen tongue [Recovered/Resolved]
  - Headache [Recovered/Resolved]
  - Feeling abnormal [Recovered/Resolved]
  - Nausea [Recovered/Resolved]
  - Fatigue [Recovered/Resolved]
